FAERS Safety Report 17576982 (Version 2)
Quarter: 2020Q2

REPORT INFORMATION
  Report Type: Spontaneous
  Country: JP (occurrence: JP)
  Receive Date: 20200324
  Receipt Date: 20200417
  Transmission Date: 20200713
  Serious: Yes (Hospitalization)
  Sender: FDA-Public Use
  Company Number: JP-UCBSA-2020007766

PATIENT
  Age: 81 Year
  Sex: Male
  Weight: 43.6 kg

DRUGS (12)
  1. ACICLOVIR [Concomitant]
     Active Substance: ACYCLOVIR
     Indication: EPILEPSY
     Dosage: 500 MILLILITER, 3X/DAY (TID)
     Route: 042
     Dates: start: 20200129, end: 20200131
  2. VIMPAT [Suspect]
     Active Substance: LACOSAMIDE
     Indication: EPILEPSY
     Dosage: 50 MILLIGRAM, 2X/DAY (BID) INJ
     Route: 041
     Dates: start: 20200131, end: 20200202
  3. VITAMEDIN [BENFOTIAMINE;CYANOCOBALAMIN;PYRIDOXINE HYDROCHLORIDE] [Concomitant]
     Indication: EPILEPSY
     Dosage: UNK, ONCE DAILY (QD)
     Route: 042
     Dates: start: 20200129
  4. ELNEOPA NF NO.1 [Concomitant]
     Indication: EPILEPSY
     Dosage: 1000 MILLILITER, ONCE DAILY (QD)
     Route: 042
     Dates: start: 20200213
  5. SOLDEM 3A [Concomitant]
     Active Substance: CARBOHYDRATES\POTASSIUM CHLORIDE\SODIUM CHLORIDE\SODIUM LACTATE
     Indication: EPILEPSY
     Dosage: 500 MILLILITER, 2X/DAY (BID)
     Route: 042
     Dates: start: 20200129, end: 20200212
  6. SULBACILLIN [Concomitant]
     Active Substance: AMPICILLIN SODIUM\SULBACTAM SODIUM
     Indication: PRODUCT USED FOR UNKNOWN INDICATION
     Dosage: 3 GRAM, 4X/DAY (QID)
     Route: 042
     Dates: start: 20200203, end: 20200212
  7. VIMPAT [Suspect]
     Active Substance: LACOSAMIDE
     Indication: PARTIAL SEIZURES
     Dosage: 200 MILLIGRAM, 2X/DAY (BID)
     Route: 041
  8. E KEPPRA [Concomitant]
     Active Substance: LEVETIRACETAM
     Indication: EPILEPSY
     Dosage: 500 MILLIGRAM, 2X/DAY (BID)
     Route: 041
     Dates: start: 20200129
  9. ISOTONIC SODIUM CHLORIDE SOLUTION [Concomitant]
     Active Substance: SODIUM CHLORIDE
     Indication: EPILEPSY
     Dosage: 100 MILLILITER, 4X/DAY (QID)
     Route: 042
     Dates: start: 20200129
  10. VIMPAT [Suspect]
     Active Substance: LACOSAMIDE
     Dosage: 100 MILLIGRAM, 2X/DAY (BID) INJ
     Route: 041
     Dates: start: 20200203, end: 20200213
  11. E KEPPRA [Concomitant]
     Active Substance: LEVETIRACETAM
     Indication: PARTIAL SEIZURES
     Dosage: 1000 MILLIGRAM, 2X/DAY (BID)
  12. SOLACET F [Concomitant]
     Active Substance: CALCIUM CHLORIDE\POTASSIUM CHLORIDE\SODIUM ACETATE\SODIUM CHLORIDE
     Indication: EPILEPSY
     Dosage: 500 MILLILITER, ONCE DAILY (QD)
     Route: 042
     Dates: start: 20200129

REACTIONS (2)
  - Pneumonia aspiration [Recovering/Resolving]
  - White blood cell count decreased [Recovered/Resolved]

NARRATIVE: CASE EVENT DATE: 20200203
